FAERS Safety Report 13895780 (Version 1)
Quarter: 2017Q3

REPORT INFORMATION
  Report Type: Spontaneous
  Country: US (occurrence: US)
  Receive Date: 20170820
  Receipt Date: 20170820
  Transmission Date: 20171127
  Serious: Yes (Other)
  Sender: FDA-Public Use
  Company Number: None

PATIENT
  Age: 28 Year
  Sex: Female
  Weight: 60.75 kg

DRUGS (3)
  1. IRON [Concomitant]
     Active Substance: IRON
  2. METRONIDAZOLE. [Suspect]
     Active Substance: METRONIDAZOLE
     Indication: CERVICITIS
     Dosage: ?          QUANTITY:1 CAPSULE(S);?
     Route: 048
     Dates: start: 20170719, end: 20170725
  3. VITAMIN [Concomitant]
     Active Substance: VITAMINS

REACTIONS (18)
  - Diarrhoea [None]
  - Flushing [None]
  - Heart rate increased [None]
  - Hypersensitivity [None]
  - Crying [None]
  - Musculoskeletal discomfort [None]
  - Blood pressure increased [None]
  - Dizziness [None]
  - Impaired work ability [None]
  - Anxiety [None]
  - Weight decreased [None]
  - Chromaturia [None]
  - Paraesthesia [None]
  - Tremor [None]
  - Nausea [None]
  - Decreased appetite [None]
  - Dysgeusia [None]
  - Muscular weakness [None]
